FAERS Safety Report 9219473 (Version 1)
Quarter: 2013Q1

REPORT INFORMATION
  Report Type: Spontaneous
  Country: US (occurrence: None)
  Receive Date: 20120830
  Receipt Date: 20120830
  Transmission Date: 20140127
  Serious: Yes (Hospitalization)
  Sender: FDA-Public Use
  Company Number: PHEH2011US02863

PATIENT
  Age: 63 Year
  Sex: Male

DRUGS (2)
  1. EXFORGE (VALSARTAN, AMLODIPINE) UNKNOWN [Suspect]
     Dosage: 160 MG AMLO AND 5 MG VIALS
  2. BABY ASPIRIN (ACETYLSALICYLIC ACID) [Concomitant]

REACTIONS (4)
  - Blood urine [None]
  - Abdominal pain [None]
  - Vomiting [None]
  - Constipation [None]
